FAERS Safety Report 17842499 (Version 1)
Quarter: 2020Q2

REPORT INFORMATION
  Report Type: Spontaneous
  Country: JP (occurrence: JP)
  Receive Date: 20200529
  Receipt Date: 20200529
  Transmission Date: 20200714
  Serious: Yes (Other)
  Sender: FDA-Public Use
  Company Number: JP-INSUD PHARMA-2005JP00080

PATIENT

DRUGS (2)
  1. CEFOTAXIME [Concomitant]
     Active Substance: CEFOTAXIME SODIUM
     Indication: APPENDICITIS PERFORATED
  2. NUVESSA [Suspect]
     Active Substance: METRONIDAZOLE
     Indication: DOUGLAS^ ABSCESS
     Dosage: UNK
     Route: 065

REACTIONS (7)
  - Pyrexia [Recovering/Resolving]
  - Haemophagocytic lymphohistiocytosis [Recovering/Resolving]
  - Rash macular [Recovering/Resolving]
  - Vomiting [Recovering/Resolving]
  - Drug eruption [Recovering/Resolving]
  - Pancytopenia [Recovering/Resolving]
  - Type IV hypersensitivity reaction [Recovering/Resolving]
